FAERS Safety Report 19096283 (Version 1)
Quarter: 2021Q2

REPORT INFORMATION
  Report Type: Spontaneous
  Country: CA (occurrence: CA)
  Receive Date: 20210406
  Receipt Date: 20210406
  Transmission Date: 20210717
  Serious: Yes (Other)
  Sender: FDA-Public Use
  Company Number: CA-PFIZER INC-2021353112

PATIENT
  Age: 60 Year
  Sex: Female

DRUGS (3)
  1. DUAVIVE [Suspect]
     Active Substance: BAZEDOXIFENE ACETATE\ESTROGENS, CONJUGATED
     Indication: POLYURIA
  2. VAGIFEM [Suspect]
     Active Substance: ESTRADIOL
     Route: 065
  3. DUAVIVE [Suspect]
     Active Substance: BAZEDOXIFENE ACETATE\ESTROGENS, CONJUGATED
     Indication: VAGINAL HAEMORRHAGE
     Route: 065

REACTIONS (5)
  - Off label use [Unknown]
  - Drug ineffective for unapproved indication [Unknown]
  - Breast mass [Unknown]
  - Thrombosis [Unknown]
  - Weight decreased [Unknown]
